FAERS Safety Report 19984598 (Version 1)
Quarter: 2021Q4

REPORT INFORMATION
  Report Type: Spontaneous
  Country: GB (occurrence: GB)
  Receive Date: 20211022
  Receipt Date: 20211022
  Transmission Date: 20220303
  Serious: Yes (Hospitalization, Disabling)
  Sender: FDA-Public Use
  Company Number: None

PATIENT
  Age: 62 Year
  Sex: Female
  Weight: 71 kg

DRUGS (9)
  1. XGEVA [Suspect]
     Active Substance: DENOSUMAB
     Indication: Breast cancer metastatic
     Dosage: 120 MILLIGRAM
     Route: 058
     Dates: start: 20170711, end: 20210923
  2. CALCIUM\CHOLECALCIFEROL [Concomitant]
     Active Substance: CALCIUM\CHOLECALCIFEROL
     Indication: Ill-defined disorder
     Dosage: UNK
  3. CAPECITABINE [Concomitant]
     Active Substance: CAPECITABINE
     Indication: Ill-defined disorder
     Dosage: UNK
  4. CYCLIZINE [Concomitant]
     Active Substance: CYCLIZINE
     Indication: Ill-defined disorder
     Dosage: UNK
  5. EVEROLIMUS [Concomitant]
     Active Substance: EVEROLIMUS
     Indication: Ill-defined disorder
     Dosage: UNK
  6. EXEMESTANE [Concomitant]
     Active Substance: EXEMESTANE
     Indication: Ill-defined disorder
     Dosage: UNK
  7. LOPERAMIDE [Concomitant]
     Active Substance: LOPERAMIDE
     Indication: Ill-defined disorder
     Dosage: UNK
  8. PREDNISOLONE [Concomitant]
     Active Substance: PREDNISOLONE
     Indication: Ill-defined disorder
     Dosage: UNK
  9. SERTRALINE [Concomitant]
     Active Substance: SERTRALINE HYDROCHLORIDE
     Indication: Ill-defined disorder
     Dosage: UNK

REACTIONS (2)
  - Stress fracture [Recovering/Resolving]
  - Stress fracture [Unknown]

NARRATIVE: CASE EVENT DATE: 20210609
